FAERS Safety Report 20414876 (Version 1)
Quarter: 2022Q1

REPORT INFORMATION
  Report Type: Report from Study
  Country: BR (occurrence: None)
  Receive Date: 20220202
  Receipt Date: 20220202
  Transmission Date: 20220423
  Serious: Yes (Other)
  Sender: FDA-Public Use
  Company Number: BR-Merck Healthcare KGaA-9296939

PATIENT
  Age: 51 Year
  Sex: Female

DRUGS (8)
  1. REBIF [Suspect]
     Active Substance: INTERFERON BETA-1A
     Indication: Multiple sclerosis
     Dates: start: 19961019
  2. REBIF [Suspect]
     Active Substance: INTERFERON BETA-1A
  3. REBIF [Suspect]
     Active Substance: INTERFERON BETA-1A
     Dates: start: 20020515, end: 20041201
  4. REBIF [Suspect]
     Active Substance: INTERFERON BETA-1A
     Dates: start: 20050701, end: 20080428
  5. REBIF [Suspect]
     Active Substance: INTERFERON BETA-1A
     Dates: start: 20080701, end: 20090914
  6. REBIF [Suspect]
     Active Substance: INTERFERON BETA-1A
     Dates: start: 20091014, end: 20141103
  7. REBIF [Suspect]
     Active Substance: INTERFERON BETA-1A
     Dates: start: 20171211, end: 20200713
  8. PROPRANOLOL [Concomitant]
     Active Substance: PROPRANOLOL HYDROCHLORIDE
     Indication: Cardiac murmur

REACTIONS (1)
  - Hypothermia [Recovered/Resolved]

NARRATIVE: CASE EVENT DATE: 20090901
